FAERS Safety Report 6423786-3 (Version None)
Quarter: 2009Q4

REPORT INFORMATION
  Report Type: 
  Country: None (occurrence: None)
  Receive Date: 20091028
  Receipt Date: 20090909
  Transmission Date: 20100525
  Serious: Yes (Hospitalization)
  Sender: FDA-Public Use
  Company Number: ALD1-JP-2009-0022

PATIENT
  Age: 25 Year
  Sex: Female

DRUGS (2)
  1. METHYLDOPA [Suspect]
     Indication: HYPERTENSION
     Dosage: ORAL
     Route: 048
  2. HYDRALAZINE (HYDRALAZINE) (HYDRALAZINE) [Concomitant]

REACTIONS (3)
  - ABORTION INDUCED [None]
  - DRUG EXPOSURE DURING PREGNANCY [None]
  - RENAL ARTERY STENOSIS [None]
